FAERS Safety Report 16752878 (Version 3)
Quarter: 2020Q3

REPORT INFORMATION
  Report Type: Spontaneous
  Country: BE (occurrence: BE)
  Receive Date: 20190829
  Receipt Date: 20200704
  Transmission Date: 20201102
  Serious: Yes (Other)
  Sender: FDA-Public Use
  Company Number: BE-AUROBINDO-AUR-APL-2019-056716

PATIENT
  Age: 32 Year
  Sex: Female

DRUGS (3)
  1. TECFIDERA [Suspect]
     Active Substance: DIMETHYL FUMARATE
     Indication: PRODUCT USED FOR UNKNOWN INDICATION
     Dosage: 240 MILLIGRAM, TWO TIMES A DAY
     Route: 065
     Dates: start: 20150417
  2. AMOXICILLIN. [Suspect]
     Active Substance: AMOXICILLIN
     Indication: PRODUCT USED FOR UNKNOWN INDICATION
     Dosage: UNK
     Route: 065
  3. GILENYA [Suspect]
     Active Substance: FINGOLIMOD HYDROCHLORIDE
     Indication: MULTIPLE SCLEROSIS
     Dosage: 0.5 MILLIGRAM, ONCE A DAY
     Route: 048
     Dates: start: 20140826, end: 20150331

REACTIONS (13)
  - Aspartate aminotransferase increased [Unknown]
  - White blood cell count decreased [Unknown]
  - Optic neuritis [Recovered/Resolved]
  - Lymphocyte percentage decreased [Unknown]
  - Gamma-glutamyltransferase increased [Unknown]
  - Dermatosis [Recovered/Resolved]
  - Alanine aminotransferase increased [Unknown]
  - Stress [Recovered/Resolved]
  - Dermatitis [Recovered/Resolved]
  - Granuloma annulare [Unknown]
  - Dermatitis allergic [Unknown]
  - Blood bilirubin increased [Recovered/Resolved]
  - Arthralgia [Not Recovered/Not Resolved]

NARRATIVE: CASE EVENT DATE: 20140929
